FAERS Safety Report 23661405 (Version 3)
Quarter: 2024Q3

REPORT INFORMATION
  Report Type: Report from Study
  Country: UY (occurrence: UY)
  Receive Date: 20240322
  Receipt Date: 20240710
  Transmission Date: 20241017
  Serious: Yes (Other)
  Sender: ABBVIE
  Company Number: UY-ABBVIE-5687115

PATIENT
  Age: 61 Year
  Sex: Female
  Weight: 70 kg

DRUGS (18)
  1. UPADACITINIB [Suspect]
     Active Substance: UPADACITINIB
     Indication: Rheumatoid arthritis
     Dosage: 15 MILLIGRAM
     Route: 048
     Dates: start: 20220114
  2. ALBUTEROL [Concomitant]
     Active Substance: ALBUTEROL
     Indication: Bronchial obstruction
     Route: 055
     Dates: start: 20230519, end: 20230524
  3. CYANOCOBALAMIN [Concomitant]
     Active Substance: CYANOCOBALAMIN
     Indication: Sciatica
     Dosage: 500 UG
     Route: 048
     Dates: start: 20230327, end: 20230403
  4. LEFLUNOMIDE [Concomitant]
     Active Substance: LEFLUNOMIDE
     Indication: Product used for unknown indication
     Dosage: 20 MILLIGRAM
     Route: 048
     Dates: start: 20170805
  5. TIZANIDINE [Concomitant]
     Active Substance: TIZANIDINE
     Indication: Sciatica
     Dosage: 2 MILLIGRAM
     Route: 048
  6. DIPYRONE [Concomitant]
     Active Substance: DIPYRONE
     Indication: Sciatica
     Dosage: FREQUENCY TEXT: ONCE
     Route: 042
     Dates: start: 20230327, end: 20230327
  7. KETOPROFEN [Concomitant]
     Active Substance: KETOPROFEN
     Indication: Sciatica
     Dosage: FREQUENCY TEXT: ONCE
     Route: 042
     Dates: start: 20230327, end: 20230327
  8. LOSARTAN [Concomitant]
     Active Substance: LOSARTAN
     Indication: Hypertension
     Dosage: 50 MILLIGRAM
     Route: 048
     Dates: start: 20190715
  9. DICLOFENAC [Concomitant]
     Active Substance: DICLOFENAC
     Indication: Osteoarthritis
     Dosage: 100 MILLIGRAM FORM STRENGTH: 50 MILLIGRAM
     Route: 048
     Dates: start: 20231122
  10. DICLOFENAC [Concomitant]
     Active Substance: DICLOFENAC
     Indication: Osteoarthritis
     Dosage: FORM STRENGTH: 50 MILLIGRAM
     Route: 048
     Dates: start: 20230327, end: 20230403
  11. CAPTOPRIL [Concomitant]
     Active Substance: CAPTOPRIL
     Indication: Hypertensive crisis
     Dosage: FREQUENCY TEXT: ONCE
     Route: 060
     Dates: start: 20230319, end: 20230519
  12. DIAZEPAM [Concomitant]
     Active Substance: DIAZEPAM
     Indication: Hypertensive crisis
     Dosage: FREQUENCY TEXT: ONCE
     Dates: start: 20230519, end: 20230519
  13. PREDNISONE [Concomitant]
     Active Substance: PREDNISONE
     Indication: Bronchial obstruction
     Dosage: 20 MILLIGRAM
     Route: 048
     Dates: start: 20230519, end: 20230524
  14. PREDNISONE [Concomitant]
     Active Substance: PREDNISONE
     Indication: Bronchial obstruction
     Dosage: 5 MILLIGRAM
     Route: 048
     Dates: start: 20180607
  15. PREDNISONE [Concomitant]
     Active Substance: PREDNISONE
     Indication: Bronchial obstruction
     Route: 048
  16. IPRATROPIUM [Concomitant]
     Active Substance: IPRATROPIUM
     Indication: Bronchial obstruction
     Route: 055
     Dates: start: 20230519, end: 20230524
  17. BETAMETHASONE [Concomitant]
     Active Substance: BETAMETHASONE\BETAMETHASONE DIPROPIONATE
     Indication: Sciatica
     Dosage: FORM STRENGTH: 0.3 MILLIGRAM
     Route: 048
     Dates: start: 20230327, end: 20230403
  18. ACETAMINOPHEN [Concomitant]
     Active Substance: ACETAMINOPHEN
     Indication: Osteoarthritis
     Dosage: 600 MILLIGRAM
     Route: 048
     Dates: start: 20231122

REACTIONS (5)
  - Hypertensive crisis [Recovered/Resolved]
  - Bronchial obstruction [Recovered/Resolved]
  - Osteoarthritis [Not Recovered/Not Resolved]
  - Bronchial obstruction [Recovered/Resolved]
  - Bronchial obstruction [Recovered/Resolved]

NARRATIVE: CASE EVENT DATE: 20220314
